FAERS Safety Report 4881417-8 (Version None)
Quarter: 2005Q4

REPORT INFORMATION
  Report Type: 
  Country: None (occurrence: None)
  Receive Date: 20051212
  Receipt Date: 20050913
  Transmission Date: 20060501
  Serious: No
  Sender: FDA-Public Use
  Company Number: 2005-01940

PATIENT
  Age: 77 Year
  Sex: Male
  Weight: 90.7 kg

DRUGS (5)
  1. VELCADE [Suspect]
     Indication: MULTIPLE MYELOMA
     Dates: start: 20050905, end: 20050909
  2. ZITHROMAX [Concomitant]
  3. TOPROL-XL [Concomitant]
  4. ALLOPURINOL [Concomitant]
  5. PERCOCET [Concomitant]

REACTIONS (3)
  - DISORIENTATION [None]
  - FATIGUE [None]
  - LETHARGY [None]
